FAERS Safety Report 11936674 (Version 1)
Quarter: 2016Q1

REPORT INFORMATION
  Report Type: Spontaneous
  Country: IT (occurrence: IT)
  Receive Date: 20160121
  Receipt Date: 20160121
  Transmission Date: 20160526
  Serious: Yes (Hospitalization)
  Sender: FDA-Public Use
  Company Number: IT-FRESENIUS KABI-FK201600343

PATIENT
  Age: 64 Year
  Sex: Male

DRUGS (5)
  1. FENTANYL. [Suspect]
     Active Substance: FENTANYL
     Indication: GENERAL ANAESTHESIA
     Route: 065
     Dates: start: 20151126, end: 20151126
  2. ROCURONIUM [Suspect]
     Active Substance: ROCURONIUM BROMIDE
     Indication: GENERAL ANAESTHESIA
     Route: 065
     Dates: start: 20151126, end: 20151126
  3. SEVOFLURANE. [Suspect]
     Active Substance: SEVOFLURANE
     Indication: GENERAL ANAESTHESIA
     Route: 065
     Dates: start: 20151126, end: 20151126
  4. PROPOFOL (MANUFACTURER UNKNOWN) [Suspect]
     Active Substance: PROPOFOL
     Indication: GENERAL ANAESTHESIA
     Route: 065
     Dates: start: 20151126, end: 20151126
  5. AMPICILLIN [Suspect]
     Active Substance: AMPICILLIN
     Indication: GENERAL ANAESTHESIA
     Route: 065
     Dates: start: 20151126, end: 20151126

REACTIONS (1)
  - Anaphylactic shock [Recovered/Resolved]

NARRATIVE: CASE EVENT DATE: 20151126
